FAERS Safety Report 21107525 (Version 2)
Quarter: 2022Q3

REPORT INFORMATION
  Report Type: Spontaneous
  Country: US (occurrence: US)
  Receive Date: 20220720
  Receipt Date: 20220721
  Transmission Date: 20221026
  Serious: Yes (Other)
  Sender: FDA-Public Use
  Company Number: US-SA-2022SA280414

PATIENT
  Age: 80 Year
  Sex: Male

DRUGS (4)
  1. LIBTAYO [Suspect]
     Active Substance: CEMIPLIMAB-RWLC
     Indication: Metastatic squamous cell carcinoma
     Dosage: 350 MG, Q3W
     Route: 042
  2. INSULIN NOS [Concomitant]
     Active Substance: INSULIN NOS
     Indication: Diabetes mellitus
     Route: 065
  3. AMLODIPINE [Concomitant]
     Active Substance: AMLODIPINE BESYLATE
     Indication: Hypertension
     Route: 065
  4. CARVEDILOL [Concomitant]
     Active Substance: CARVEDILOL
     Indication: Hypertension
     Route: 065

REACTIONS (6)
  - Papule [Unknown]
  - Blister [Unknown]
  - Skin erosion [Unknown]
  - Pruritus [Unknown]
  - Pemphigoid [Unknown]
  - Gastrointestinal disorder [Unknown]
